FAERS Safety Report 4405367-6 (Version None)
Quarter: 2004Q3

REPORT INFORMATION
  Report Type: 
  Country: None (occurrence: None)
  Receive Date: 20040716
  Receipt Date: 20040709
  Transmission Date: 20050211
  Serious: Yes (Hospitalization)
  Sender: FDA-Public Use
  Company Number: 04P-062-0259226-00

PATIENT
  Age: 48 Year
  Sex: Male

DRUGS (5)
  1. DEPAKENE [Suspect]
     Indication: SCHIZOAFFECTIVE DISORDER
  2. THIAMINE HCL [Suspect]
     Indication: VITAMIN SUPPLEMENTATION
  3. PYRIDOXINE HYDROCHLORIDE [Suspect]
     Indication: VITAMIN SUPPLEMENTATION
  4. AMUSULPRIDE [Concomitant]
  5. LITHIUM [Concomitant]

REACTIONS (9)
  - BLOOD CREATININE INCREASED [None]
  - EOSINOPHILIA [None]
  - HYPERSENSITIVITY [None]
  - LYMPHADENOPATHY [None]
  - PYREXIA [None]
  - RASH MACULO-PAPULAR [None]
  - SKIN TEST POSITIVE [None]
  - TRANSAMINASES INCREASED [None]
  - WHITE BLOOD CELL COUNT INCREASED [None]
